FAERS Safety Report 14706348 (Version 2)
Quarter: 2018Q2

REPORT INFORMATION
  Report Type: Report from Study
  Country: CA (occurrence: CA)
  Receive Date: 20180402
  Receipt Date: 20180428
  Transmission Date: 20180711
  Serious: Yes (Death, Hospitalization)
  Sender: FDA-Public Use
  Company Number: CA-HLSUS-2018-CA-000569

PATIENT
  Age: 72 Year
  Sex: Male
  Weight: 93 kg

DRUGS (4)
  1. CLOZARIL [Suspect]
     Active Substance: CLOZAPINE
     Indication: SCHIZOAFFECTIVE DISORDER BIPOLAR TYPE
     Dosage: 125 MG BID
     Route: 048
     Dates: start: 20100823
  2. EPIVAL [Concomitant]
     Active Substance: DIVALPROEX SODIUM
  3. DOXEPIN [Concomitant]
     Active Substance: DOXEPIN
  4. LITHIUM. [Concomitant]
     Active Substance: LITHIUM

REACTIONS (12)
  - Constipation [Unknown]
  - Intestinal obstruction [Fatal]
  - Vomiting [Unknown]
  - Acute kidney injury [Unknown]
  - Dyspnoea [Unknown]
  - Diarrhoea [Unknown]
  - Loss of consciousness [Unknown]
  - Abdominal pain [Unknown]
  - Inguinal hernia [Fatal]
  - Odynophagia [Unknown]
  - Blood lactic acid increased [Unknown]
  - Pneumonia aspiration [Fatal]

NARRATIVE: CASE EVENT DATE: 2016
